FAERS Safety Report 25498925 (Version 1)
Quarter: 2025Q3

REPORT INFORMATION
  Report Type: Report from Study
  Country: US (occurrence: US)
  Receive Date: 20250701
  Receipt Date: 20250701
  Transmission Date: 20251021
  Serious: Yes (Hospitalization)
  Sender: UCB
  Company Number: US-UCBSA-2025038977

PATIENT
  Age: 76 Year
  Sex: Female

DRUGS (1)
  1. BIMEKIZUMAB [Suspect]
     Active Substance: BIMEKIZUMAB
     Indication: Psoriatic arthropathy
     Dosage: 160 MILLIGRAM, EV 4 WEEKS
     Route: 058
     Dates: start: 20250508, end: 20250611

REACTIONS (5)
  - Rash pruritic [Recovering/Resolving]
  - Oral mucosal discolouration [Recovering/Resolving]
  - Mastication disorder [Recovering/Resolving]
  - Swelling face [Recovered/Resolved]
  - Eyelid margin crusting [Recovering/Resolving]

NARRATIVE: CASE EVENT DATE: 20250614
